FAERS Safety Report 5647260-7 (Version None)
Quarter: 2008Q1

REPORT INFORMATION
  Report Type: 
  Country: None (occurrence: None)
  Receive Date: 20080228
  Receipt Date: 20080225
  Transmission Date: 20080703
  Serious: Yes (Death)
  Sender: FDA-Public Use
  Company Number: TCI2008A00865

PATIENT
  Age: 82 Year
  Sex: Male

DRUGS (8)
  1. LEUPLIN SR FOR INJECTION KIT 11.25 [Suspect]
     Indication: PROSTATE CANCER
     Dosage: 11.25 MG (11.25 MG, 1 IN 12 WK) SUBCUTANEOUS
     Route: 058
     Dates: start: 20061206, end: 20070808
  2. CASODEX [Concomitant]
  3. BAYCARON         (MEFRUSIDE) [Concomitant]
  4. MEDAZEPAM [Concomitant]
  5. MIKELAN   (CARTEOLOL HYDROCHLORIDE) [Concomitant]
  6. SERMION         (NICERGOLINE) [Concomitant]
  7. SUCRALFATE [Concomitant]
  8. MAGNESIUM OXIDE [Concomitant]

REACTIONS (1)
  - GASTRIC CANCER [None]
